FAERS Safety Report 9014618 (Version 3)
Quarter: 2016Q2

REPORT INFORMATION
  Report Type: Spontaneous
  Country: US (occurrence: US)
  Receive Date: 20130115
  Receipt Date: 20160628
  Transmission Date: 20160815
  Serious: Yes (Hospitalization, Other)
  Sender: FDA-Public Use
  Company Number: US-009507513-1301USA006332

PATIENT
  Sex: Female

DRUGS (2)
  1. FOSAMAX [Suspect]
     Active Substance: ALENDRONATE SODIUM
     Indication: BONE LOSS
     Dosage: UNK, UNKNOWN
     Route: 048
     Dates: start: 200604
  2. FOSAMAX PLUS D [Suspect]
     Active Substance: ALENDRONATE SODIUM\CHOLECALCIFEROL
     Indication: BONE LOSS
     Dosage: UNK, UNKNOWN
     Route: 048
     Dates: start: 200604, end: 2006

REACTIONS (9)
  - Procedural vomiting [Recovered/Resolved]
  - Procedural nausea [Recovered/Resolved]
  - Blood cholesterol increased [Unknown]
  - Effusion [Unknown]
  - Breast cancer recurrent [Unknown]
  - Fracture delayed union [Recovering/Resolving]
  - Hypertension [Unknown]
  - Breast cancer [Unknown]
  - Femur fracture [Unknown]

NARRATIVE: CASE EVENT DATE: 2006
